FAERS Safety Report 9094474 (Version 5)
Quarter: 2013Q2

REPORT INFORMATION
  Report Type: Spontaneous
  Country: FI (occurrence: FI)
  Receive Date: 20130218
  Receipt Date: 20130419
  Transmission Date: 20140414
  Serious: Yes (Hospitalization, Other)
  Sender: FDA-Public Use
  Company Number: FI-ROCHE-1191773

PATIENT
  Age: 66 Year
  Sex: Male

DRUGS (3)
  1. ZELBORAF [Suspect]
     Indication: PRODUCT USED FOR UNKNOWN INDICATION
     Route: 048
     Dates: start: 20121203, end: 20130125
  2. ZELBORAF [Suspect]
     Route: 065
     Dates: start: 20130128, end: 20130212
  3. ROFERON-A [Suspect]
     Indication: METASTATIC MALIGNANT MELANOMA
     Route: 065

REACTIONS (5)
  - Squamous cell carcinoma [Unknown]
  - Neutrophil count decreased [Unknown]
  - Rash [Unknown]
  - Metastases to central nervous system [Unknown]
  - Pruritus [Unknown]
